FAERS Safety Report 9144524 (Version 1)
Quarter: 2013Q1

REPORT INFORMATION
  Report Type: Spontaneous
  Country: US (occurrence: US)
  Receive Date: 20130306
  Receipt Date: 20130306
  Transmission Date: 20140127
  Serious: No
  Sender: FDA-Public Use
  Company Number: US-ASTRAZENECA-2013SE12971

PATIENT
  Age: 82 Year
  Sex: Male

DRUGS (1)
  1. TOPROL  XL [Suspect]
     Route: 048

REACTIONS (2)
  - Pruritus [Unknown]
  - Rash [Unknown]
